FAERS Safety Report 7286441-6 (Version None)
Quarter: 2011Q1

REPORT INFORMATION
  Report Type: 
  Country: None (occurrence: None)
  Receive Date: 20110210
  Receipt Date: 20110127
  Transmission Date: 20110831
  Serious: Yes (Hospitalization)
  Sender: FDA-Public Use
  Company Number: US-MYLANLABS-2011S1002070

PATIENT
  Age: 88 Year
  Sex: Female

DRUGS (3)
  1. ASPIRIN [Concomitant]
     Route: 065
  2. FLECAINIDE [Interacting]
     Route: 065
  3. METOPROLOL [Suspect]
     Route: 065

REACTIONS (3)
  - HYPOTENSION [None]
  - DEVICE CAPTURING ISSUE [None]
  - DRUG INTERACTION [None]
